APPROVED DRUG PRODUCT: AMINOCAPROIC ACID
Active Ingredient: AMINOCAPROIC ACID
Strength: 250MG/ML
Dosage Form/Route: INJECTABLE;INJECTION
Application: A215374 | Product #001 | TE Code: AP
Applicant: GEN ILAC VE SAGLIK URUNLERI SANAYI VE TICARET ANONIM SIRKETI FABRIKA SUBESI
Approved: Aug 28, 2025 | RLD: No | RS: No | Type: RX